FAERS Safety Report 5473943-8 (Version None)
Quarter: 2007Q3

REPORT INFORMATION
  Report Type: 
  Country: None (occurrence: None)
  Receive Date: 20070831
  Receipt Date: 20070628
  Transmission Date: 20080115
  Serious: No
  Sender: FDA-Public Use
  Company Number: 243738

PATIENT
  Sex: Male

DRUGS (2)
  1. LUCENTIS [Suspect]
     Indication: MACULAR DEGENERATION
     Dosage: INTRAVITREAL
     Dates: start: 20070301
  2. LUCENTIS [Suspect]
     Indication: OEDEMA
     Dosage: INTRAVITREAL
     Dates: start: 20070301

REACTIONS (1)
  - CATARACT [None]
